FAERS Safety Report 25248007 (Version 1)
Quarter: 2025Q2

REPORT INFORMATION
  Report Type: Spontaneous
  Country: US (occurrence: US)
  Receive Date: 20250429
  Receipt Date: 20250429
  Transmission Date: 20250716
  Serious: Yes (Other)
  Sender: ROCHE
  Company Number: US-ROCHE-10000266280

PATIENT
  Sex: Female

DRUGS (27)
  1. XOLAIR PFS [Suspect]
     Active Substance: OMALIZUMAB
     Indication: Type 2 diabetes mellitus
     Route: 058
  2. XOLAIR PFS [Suspect]
     Active Substance: OMALIZUMAB
     Indication: Neuropathic arthropathy
     Route: 058
  3. ALBUTEROL SU AER [Concomitant]
  4. ARIPIPRAZOLE [Concomitant]
     Active Substance: ARIPIPRAZOLE
  5. MACRODANTIN [Concomitant]
     Active Substance: NITROFURANTOIN
  6. PENICILLIN V [Concomitant]
     Active Substance: PENICILLIN V
  7. POTASSIUM [Concomitant]
     Active Substance: POTASSIUM
  8. MACROBID [Concomitant]
     Active Substance: NITROFURANTOIN\NITROFURANTOIN MONOHYDRATE
  9. AZITHROMYCIN POW [Concomitant]
  10. MONTELUKAST SODIUM [Concomitant]
     Active Substance: MONTELUKAST SODIUM
  11. CLARITHROMYCIN [Concomitant]
     Active Substance: CLARITHROMYCIN
  12. MUCINEX [Concomitant]
     Active Substance: GUAIFENESIN
  13. CLINDAMYCIN HYDROCHLORIDE [Concomitant]
     Active Substance: CLINDAMYCIN HYDROCHLORIDE
  14. ATORVASTATIN [Concomitant]
     Active Substance: ATORVASTATIN
  15. CIPROFLOXACI [Concomitant]
  16. FLUOXETINE [Concomitant]
     Active Substance: FLUOXETINE HYDROCHLORIDE
  17. HYDROCODONE [Concomitant]
     Active Substance: HYDROCODONE
  18. LISINOPRIL [Concomitant]
     Active Substance: LISINOPRIL
  19. TOPIRAMATE [Concomitant]
     Active Substance: TOPIRAMATE
  20. NYSTATIN [Concomitant]
     Active Substance: NYSTATIN
  21. SULFAMETHOXAZOLE\TRIMETHOPRIM [Concomitant]
     Active Substance: SULFAMETHOXAZOLE\TRIMETHOPRIM
  22. NITROFURANTOIN MONOHYDRATE [Concomitant]
     Active Substance: NITROFURANTOIN MONOHYDRATE
  23. CIPROFLOXACIN HYDROCHLORIDE [Concomitant]
     Active Substance: CIPROFLOXACIN HYDROCHLORIDE
  24. OXYBUTYNIN CHLORIDE [Concomitant]
     Active Substance: OXYBUTYNIN CHLORIDE
  25. PREMARIN [Concomitant]
     Active Substance: ESTROGENS, CONJUGATED
  26. ACETAMINOPHEN\HYDROCODONE [Concomitant]
     Active Substance: ACETAMINOPHEN\HYDROCODONE
  27. PHENAZOPYRIDINE HCL [Concomitant]
     Active Substance: PHENAZOPYRIDINE HYDROCHLORIDE

REACTIONS (5)
  - Off label use [Unknown]
  - Asthma [Unknown]
  - Cataract [Unknown]
  - Onychoclasis [Unknown]
  - Impaired work ability [Unknown]
